FAERS Safety Report 8305685-5 (Version None)
Quarter: 2012Q2

REPORT INFORMATION
  Report Type: 
  Country: None (occurrence: None)
  Receive Date: 20120423
  Receipt Date: 20120413
  Transmission Date: 20120825
  Serious: Yes (Hospitalization)
  Sender: FDA-Public Use
  Company Number: US-ALEXION-A201200531

PATIENT
  Sex: Female
  Weight: 15.8 kg

DRUGS (8)
  1. ALBUTEROL [Concomitant]
     Dosage: UNK, 2 PUFFS Q4HRS, PRN
  2. CLONIDINE [Concomitant]
  3. SINGULAIR [Concomitant]
     Dosage: UNK, 1 TAB, QD
     Route: 048
  4. SOLIRIS [Suspect]
     Indication: HAEMOLYTIC URAEMIC SYNDROME
     Dosage: UNK
     Route: 042
     Dates: start: 20111201
  5. NORVASC [Concomitant]
     Dosage: 1 MG, QD
     Route: 048
  6. QVAR 40 [Concomitant]
     Dosage: UNK, 2 PUFFS, BID
  7. ENALAPRIL MALEATE [Concomitant]
     Dosage: 2 ML, QD
     Route: 048
  8. NEPHRON [Concomitant]
     Dosage: 500 MG, QD
     Route: 048

REACTIONS (18)
  - VOMITING [None]
  - PYREXIA [None]
  - BLOOD IRON DECREASED [None]
  - NEUTROPENIA [None]
  - RED BLOOD CELL COUNT DECREASED [None]
  - PLATELET COUNT DECREASED [None]
  - DIARRHOEA [None]
  - BLOOD PRESSURE INCREASED [None]
  - NAUSEA [None]
  - ABDOMINAL PAIN [None]
  - URINE OUTPUT DECREASED [None]
  - BLOOD CREATININE INCREASED [None]
  - BLOOD UREA INCREASED [None]
  - SINUS CONGESTION [None]
  - PRODUCTIVE COUGH [None]
  - HAEMOGLOBIN DECREASED [None]
  - HAEMATOCRIT DECREASED [None]
  - DEHYDRATION [None]
